FAERS Safety Report 4819236-0 (Version None)
Quarter: 2005Q4

REPORT INFORMATION
  Report Type: 
  Country: None (occurrence: None)
  Receive Date: 20051103
  Receipt Date: 20050722
  Transmission Date: 20060501
  Serious: Yes (Death)
  Sender: FDA-Public Use
  Company Number: US-MERCK-0507USA03854

PATIENT
  Sex: Male

DRUGS (1)
  1. VIOXX [Suspect]
     Route: 048
     Dates: start: 20020401, end: 20020903

REACTIONS (2)
  - MYOCARDIAL INFARCTION [None]
  - PRESCRIBED OVERDOSE [None]
